FAERS Safety Report 7883442-1 (Version None)
Quarter: 2011Q4

REPORT INFORMATION
  Report Type: 
  Country: None (occurrence: None)
  Receive Date: 20111031
  Receipt Date: 20111017
  Transmission Date: 20120403
  Serious: Yes (Other)
  Sender: FDA-Public Use
  Company Number: 1000022160

PATIENT
  Age: 35 Year
  Sex: Male
  Weight: 77.1 kg

DRUGS (1)
  1. ESCITALOPRAM OXALATE [Suspect]
     Indication: DEPRESSION
     Dosage: 10 MG (10 MG, 1 IN 1 TATAL), ORAL
     Route: 048
     Dates: start: 20110110, end: 20110110

REACTIONS (11)
  - HALLUCINATION [None]
  - HAEMORRHAGE [None]
  - NAUSEA [None]
  - SYNCOPE [None]
  - SEROTONIN SYNDROME [None]
  - MUSCULAR WEAKNESS [None]
  - HEART RATE INCREASED [None]
  - MUSCLE SPASMS [None]
  - DYSPNOEA [None]
  - NERVOUSNESS [None]
  - DIZZINESS [None]
